FAERS Safety Report 18428290 (Version 6)
Quarter: 2021Q1

REPORT INFORMATION
  Report Type: Spontaneous
  Country: BR (occurrence: BR)
  Receive Date: 20201026
  Receipt Date: 20210304
  Transmission Date: 20210419
  Serious: Yes (Other)
  Sender: FDA-Public Use
  Company Number: BR-PFIZER INC-2020405182

PATIENT
  Age: 30 Year
  Sex: Female

DRUGS (2)
  1. SAYANA [Suspect]
     Active Substance: MEDROXYPROGESTERONE
     Indication: CONTRACEPTION
     Dosage: UNK, EVERY 3 MONTHS (QUARTERLY)
     Dates: start: 20200619
  2. SAYANA [Suspect]
     Active Substance: MEDROXYPROGESTERONE
     Dosage: UNK, EVERY 3 MONTHS
     Dates: start: 20200919

REACTIONS (7)
  - Exposure via skin contact [Recovered/Resolved]
  - Menstruation irregular [Unknown]
  - Incorrect dose administered by device [Recovered/Resolved]
  - Product prescribing error [Unknown]
  - Injection site pain [Unknown]
  - Wrong technique in device usage process [Recovering/Resolving]
  - Injection site mass [Recovering/Resolving]

NARRATIVE: CASE EVENT DATE: 20200619
